FAERS Safety Report 8540529 (Version 2)
Quarter: 2013Q2

REPORT INFORMATION
  Report Type: Spontaneous
  Country: US (occurrence: US)
  Receive Date: 20120502
  Receipt Date: 20130402
  Transmission Date: 20140414
  Serious: Yes (Hospitalization, Other)
  Sender: FDA-Public Use
  Company Number: US-BAYER-2012-041657

PATIENT
  Age: 26 Year
  Sex: Female
  Weight: 54.42 kg

DRUGS (6)
  1. YASMIN [Suspect]
     Indication: CONTRACEPTION
     Dosage: UNK
     Route: 048
     Dates: start: 200906, end: 200911
  2. YASMIN [Suspect]
     Indication: PREMENSTRUAL SYNDROME
  3. ORTHO TRI-CYCLEN [Concomitant]
     Dosage: UNK
     Dates: start: 20091202
  4. MACROBID [Concomitant]
     Dosage: 100 MG, QD
     Route: 048
  5. ZYRTEC [Concomitant]
     Dosage: 10 MG, QD
     Route: 048
  6. ORTHO TRI-CYCLEN LO [Concomitant]
     Dosage: UNK
     Dates: start: 20091103

REACTIONS (6)
  - Gallbladder injury [None]
  - Cholecystitis acute [None]
  - Injury [None]
  - Pain [None]
  - Emotional distress [None]
  - General physical health deterioration [None]
